FAERS Safety Report 15854948 (Version 2)
Quarter: 2020Q3

REPORT INFORMATION
  Report Type: Spontaneous
  Country: NL (occurrence: NL)
  Receive Date: 20190122
  Receipt Date: 20200924
  Transmission Date: 20201102
  Serious: Yes (Other)
  Sender: FDA-Public Use
  Company Number: NL-TEVA-2019-NL-1001776

PATIENT
  Age: 51 Year
  Sex: Male
  Weight: 66 kg

DRUGS (10)
  1. COLECALCIFEROL TABLET 400IE / BRAND NAME NOT SPECIFIED [Concomitant]
     Active Substance: CHOLECALCIFEROL
     Dosage: THERAPY START DATE: ASKU, THERAPY END DATE:ASKU
  2. LITHIUMCARBONAAT TABLET MGA 400MG / PRIADEL TABLET MGA 400MG [Concomitant]
     Dosage: THERAPY START DATE: ASKU, THERAPY END DATE:ASKU
  3. ECHINACEA TABLET [Concomitant]
     Dosage: THERAPY START DATE: ASKU, THERAPY END DATE:ASKU
  4. MULTIVITAMINEN [Concomitant]
     Dosage: THERAPY START DATE: ASKU, THERAPY END DATE:ASKU
  5. NON SPECIFIED KLYSMA [Concomitant]
     Dosage: (2X / YEAR),THERAPY START DATE: ASKU, THERAPY END DATE:ASKU, 1DF
  6. CARBAMAZEPINE TABLET 100MG / BRAND NAME NOT SPECIFIED [Suspect]
     Active Substance: CARBAMAZEPINE
     Indication: BIPOLAR DISORDER
     Dosage: 2.5 TIMES A DAY (2X1 AND 1X0.5),THERAPY END DATE:ASKU, 1DF
     Route: 065
     Dates: start: 20170508
  7. CYANOCOBALAMINE / BRAND NAME NOT SPECIFIED [Concomitant]
     Active Substance: CYANOCOBALAMIN
     Dosage: THERAPY START DATE: ASKU, THERAPY END DATE:ASKU
  8. PROPRANOLOL HYDROCHLORIDE / BRAND NAME NOT SPECIFIED [Concomitant]
     Dosage: THERAPY START DATE: ASKU, THERAPY END DATE:ASKU
  9. MACROGOL/ZOUTEN PDR V DRANK (MOVICOLON+GENERIEK) / BRAND NAME NOT SPEC [Concomitant]
     Dosage: DOSAGE TEXT:(10 SACHETS / YEAR),THERAPY START DATE: ASKU, THERAPY END DATE:ASKU, 1 DF???(10 BAGS / Y
  10. CLOZAPINE / BRAND NAME NOT SPECIFIED [Concomitant]
     Dosage: THERAPY START DATE: ASKU, THERAPY END DATE:ASKU

REACTIONS (3)
  - Loss of consciousness [Not Recovered/Not Resolved]
  - Salivary hypersecretion [Not Recovered/Not Resolved]
  - Cognitive disorder [Not Recovered/Not Resolved]

NARRATIVE: CASE EVENT DATE: 20170911
